FAERS Safety Report 5092276-5 (Version None)
Quarter: 2006Q3

REPORT INFORMATION
  Report Type: 
  Country: None (occurrence: None)
  Receive Date: 20060825
  Receipt Date: 20060807
  Transmission Date: 20061208
  Serious: Yes (Hospitalization, Other)
  Sender: FDA-Public Use
  Company Number: US200608001477

PATIENT
  Age: 53 Year
  Sex: Female

DRUGS (8)
  1. HUMALOG [Suspect]
     Indication: DIABETES MELLITUS
  2. ILETIN [Suspect]
     Indication: DIABETES MELLITUS
     Dates: start: 19830101, end: 19840101
  3. ILETIN [Suspect]
     Indication: DIABETES MELLITUS
     Dates: start: 19830101, end: 19840101
  4. INSULIN [Suspect]
     Indication: DIABETES MELLITUS
     Dates: start: 19840101
  5. HUMULIN U [Suspect]
     Indication: DIABETES MELLITUS
     Dates: end: 20060802
  6. HUMULIN R [Suspect]
     Indication: DIABETES MELLITUS
  7. LANTUS [Concomitant]
  8. NOVOLOG [Concomitant]

REACTIONS (19)
  - ACIDOSIS [None]
  - BLOOD GLUCOSE DECREASED [None]
  - BLOOD GLUCOSE INCREASED [None]
  - CATARACT [None]
  - CYSTITIS [None]
  - DIABETES MELLITUS INADEQUATE CONTROL [None]
  - DRUG EXPOSURE DURING PREGNANCY [None]
  - DRUG HYPERSENSITIVITY [None]
  - EYE DISORDER [None]
  - EYE HAEMORRHAGE [None]
  - INFECTION [None]
  - MALAISE [None]
  - MENTAL IMPAIRMENT [None]
  - PREGNANCY [None]
  - PRURITUS GENERALISED [None]
  - RENAL DISORDER [None]
  - RENAL IMPAIRMENT [None]
  - SPEECH DISORDER [None]
  - TRANSIENT ISCHAEMIC ATTACK [None]
